FAERS Safety Report 5712015-1 (Version None)
Quarter: 2008Q2

REPORT INFORMATION
  Report Type: 
  Country: None (occurrence: None)
  Receive Date: 20080417
  Receipt Date: 20080401
  Transmission Date: 20081010
  Serious: Yes (Hospitalization, Other)
  Sender: FDA-Public Use
  Company Number: S08-FRA-01416-01

PATIENT
  Age: 35 Year
  Sex: Female

DRUGS (3)
  1. ESCITALOPRAM [Suspect]
     Dosage: 20 MG QD PO
     Route: 048
  2. CYCLEANE (DESOGESTREL/ETHINYL ESTRADIOL) [Suspect]
     Indication: CONTRACEPTION
  3. NOCTAMIDE (LORMETAZEPAM) [Suspect]
     Indication: INSOMNIA

REACTIONS (3)
  - DRUG EXPOSURE DURING PREGNANCY [None]
  - DRUG INTERACTION [None]
  - ECTOPIC PREGNANCY [None]
